FAERS Safety Report 7266055-4 (Version None)
Quarter: 2011Q1

REPORT INFORMATION
  Report Type: 
  Country: None (occurrence: None)
  Receive Date: 20110131
  Receipt Date: 20100218
  Transmission Date: 20110831
  Serious: No
  Sender: FDA-Public Use
  Company Number: US-ABBOTT-10P-163-0628229-00

PATIENT

DRUGS (4)
  1. ZOCOR [Concomitant]
     Indication: BLOOD CHOLESTEROL INCREASED
  2. ELIGARD [Suspect]
     Indication: PROSTATE CANCER
     Dates: start: 20100201
  3. LUPRON DEPOT [Suspect]
     Indication: PROSTATE CANCER
     Dates: start: 20060101, end: 20100201
  4. ASPIRIN [Concomitant]
     Indication: CARDIAC PACEMAKER INSERTION

REACTIONS (3)
  - INJECTION SITE PAIN [None]
  - NODULE [None]
  - ABDOMINAL PAIN UPPER [None]
